FAERS Safety Report 7003723-3 (Version None)
Quarter: 2010Q3

REPORT INFORMATION
  Report Type: 
  Country: None (occurrence: None)
  Receive Date: 20100920
  Receipt Date: 20091118
  Transmission Date: 20110219
  Serious: No
  Sender: FDA-Public Use
  Company Number: US-WYE-H11625209

PATIENT
  Sex: Male
  Weight: 90.8 kg

DRUGS (6)
  1. PRISTIQ [Suspect]
     Indication: DEPRESSION
     Route: 048
     Dates: start: 20090901, end: 20091003
  2. ANDROGEL [Concomitant]
  3. VERAPAMIL [Concomitant]
  4. WARFARIN SODIUM [Concomitant]
  5. METOPROLOL [Concomitant]
  6. DIGOXIN [Concomitant]

REACTIONS (4)
  - CONDITION AGGRAVATED [None]
  - HYPERTENSION [None]
  - LIBIDO DECREASED [None]
  - SEXUAL DYSFUNCTION [None]
